FAERS Safety Report 25278331 (Version 1)
Quarter: 2025Q2

REPORT INFORMATION
  Report Type: Spontaneous
  Country: US (occurrence: None)
  Receive Date: 20250506
  Receipt Date: 20250506
  Transmission Date: 20250717
  Serious: Yes (Other)
  Sender: FDA-CTU
  Company Number: None

PATIENT
  Age: 38 Year
  Sex: Female
  Weight: 64.35 kg

DRUGS (4)
  1. NIFEDIPINE [Suspect]
     Active Substance: NIFEDIPINE
     Indication: Hypertension
     Dosage: FREQUENCY : DAILY;?
     Route: 048
     Dates: start: 20241031, end: 20250212
  2. AUGMENTIN [Concomitant]
     Active Substance: AMOXICILLIN\CLAVULANATE POTASSIUM
     Dates: start: 20241231, end: 20250107
  3. METRONIDAZOLE [Concomitant]
     Active Substance: METRONIDAZOLE
     Dates: start: 20250109, end: 20250116
  4. NEXPLANON [Concomitant]
     Active Substance: ETONOGESTREL
     Dates: start: 20240318

REACTIONS (2)
  - Fatigue [None]
  - Dyspnoea exertional [None]

NARRATIVE: CASE EVENT DATE: 20250212
